FAERS Safety Report 9736726 (Version 1)
Quarter: 2013Q4

REPORT INFORMATION
  Report Type: Spontaneous
  Country: TR (occurrence: TR)
  Receive Date: 20131206
  Receipt Date: 20131206
  Transmission Date: 20140711
  Serious: Yes (Other)
  Sender: FDA-Public Use
  Company Number: PHHY2013TR139488

PATIENT
  Age: 61 Year
  Sex: Female

DRUGS (3)
  1. ZOLEDRONIC ACID [Suspect]
     Indication: METASTASES TO BONE
  2. CLODRONIC ACID [Suspect]
     Indication: METASTASES TO BONE
  3. LETROZOLE [Concomitant]

REACTIONS (6)
  - Dystrophic calcification [Recovered/Resolved]
  - Inflammation [Unknown]
  - Fibrosis [Unknown]
  - Rash [Unknown]
  - Breast discharge [Unknown]
  - Metaplasia [Unknown]
